FAERS Safety Report 6660117-8 (Version None)
Quarter: 2010Q1

REPORT INFORMATION
  Report Type: 
  Country: None (occurrence: None)
  Receive Date: 20100331
  Receipt Date: 20100301
  Transmission Date: 20100710
  Serious: No
  Sender: FDA-Public Use
  Company Number: 2009BI004863

PATIENT
  Age: 28 Year
  Sex: Female

DRUGS (4)
  1. TYSABRI [Suspect]
     Indication: MULTIPLE SCLEROSIS
     Route: 042
     Dates: start: 20081218
  2. AVONEX [Concomitant]
     Indication: MULTIPLE SCLEROSIS
     Route: 030
     Dates: start: 20061030, end: 20070615
  3. AVONEX [Concomitant]
     Route: 030
     Dates: start: 20081217
  4. AVONEX [Concomitant]
     Route: 030
     Dates: start: 20091206

REACTIONS (2)
  - INFLUENZA LIKE ILLNESS [None]
  - URTICARIA [None]
